FAERS Safety Report 7430165-9 (Version None)
Quarter: 2011Q2

REPORT INFORMATION
  Report Type: 
  Country: None (occurrence: None)
  Receive Date: 20110421
  Receipt Date: 20100412
  Transmission Date: 20111010
  Serious: No
  Sender: FDA-Public Use
  Company Number: US-ASTRAZENECA-2010SE16126

PATIENT
  Age: 79 Year
  Sex: Female

DRUGS (2)
  1. TOPROL-XL [Suspect]
     Route: 048
     Dates: start: 20100101, end: 20100101
  2. TOPROL-XL [Suspect]
     Route: 048
     Dates: start: 20090401, end: 20100101

REACTIONS (2)
  - DYSPNOEA [None]
  - JOINT SWELLING [None]
